FAERS Safety Report 15349238 (Version 1)
Quarter: 2018Q3

REPORT INFORMATION
  Report Type: Spontaneous
  Country: US (occurrence: US)
  Receive Date: 20180904
  Receipt Date: 20180904
  Transmission Date: 20181010
  Serious: Yes (Hospitalization)
  Sender: FDA-Public Use
  Company Number: US-ASTRAZENECA-2018SF09713

PATIENT
  Age: 805 Month
  Sex: Female
  Weight: 108.9 kg

DRUGS (4)
  1. OXYGEN. [Concomitant]
     Active Substance: OXYGEN
     Indication: CHRONIC OBSTRUCTIVE PULMONARY DISEASE
     Dosage: 2.0L CONTINUOUSLY
     Route: 045
     Dates: start: 2013
  2. SYMBICORT [Suspect]
     Active Substance: BUDESONIDE\FORMOTEROL FUMARATE DIHYDRATE
     Indication: CHRONIC OBSTRUCTIVE PULMONARY DISEASE
     Dosage: EITHER 1 OR 2 PUFFS IN THE MORNING, 1 TIME A DAY
     Route: 055
     Dates: start: 201505, end: 201505
  3. SYMBICORT [Suspect]
     Active Substance: BUDESONIDE\FORMOTEROL FUMARATE DIHYDRATE
     Indication: EMPHYSEMA
     Dosage: EITHER 1 OR 2 PUFFS IN THE MORNING, 1 TIME A DAY
     Route: 055
     Dates: start: 201505, end: 201505
  4. OXYGEN. [Concomitant]
     Active Substance: OXYGEN
     Indication: EMPHYSEMA
     Dosage: 2.0L CONTINUOUSLY
     Route: 045
     Dates: start: 2013

REACTIONS (3)
  - Stress [Not Recovered/Not Resolved]
  - Lung neoplasm malignant [Recovered/Resolved]
  - Dyspnoea [Recovered/Resolved]

NARRATIVE: CASE EVENT DATE: 201505
